FAERS Safety Report 12840110 (Version 2)
Quarter: 2017Q1

REPORT INFORMATION
  Report Type: Other
  Country: LU (occurrence: LU)
  Receive Date: 20161012
  Receipt Date: 20170104
  Transmission Date: 20170428
  Serious: No
  Sender: FDA-Public Use
  Company Number: LU-ARIAD PHARMACEUTICALS, INC-2016LU007047

PATIENT
  Sex: Female

DRUGS (1)
  1. ICLUSIG [Suspect]
     Active Substance: PONATINIB
     Indication: LEUKAEMIA
     Dosage: UNK

REACTIONS (1)
  - No adverse event [Unknown]
